FAERS Safety Report 6945374-2 (Version None)
Quarter: 2010Q3

REPORT INFORMATION
  Report Type: 
  Country: None (occurrence: None)
  Receive Date: 20100827
  Receipt Date: 20100818
  Transmission Date: 20110219
  Serious: Yes (Other)
  Sender: FDA-Public Use
  Company Number: BE-ROCHE-703410

PATIENT
  Sex: Female
  Weight: 55 kg

DRUGS (5)
  1. ROACTEMRA [Suspect]
     Route: 042
     Dates: start: 20090703, end: 20100401
  2. ROACTEMRA [Suspect]
     Route: 042
     Dates: start: 20100701
  3. METHOTREXATE [Concomitant]
     Route: 048
     Dates: start: 20081121
  4. PREDNISOLONE [Concomitant]
     Route: 048
     Dates: start: 20081121
  5. CELEBREX [Concomitant]
     Route: 048
     Dates: start: 20081121

REACTIONS (2)
  - CELLULITIS STAPHYLOCOCCAL [None]
  - VIITH NERVE PARALYSIS [None]
